FAERS Safety Report 4755753-X (Version None)
Quarter: 2005Q3

REPORT INFORMATION
  Report Type: 
  Country: None (occurrence: None)
  Receive Date: 20050830
  Receipt Date: 20050720
  Transmission Date: 20060218
  Serious: Yes (Hospitalization)
  Sender: FDA-Public Use
  Company Number: US-BRISTOL-MYERS SQUIBB COMPANY-13045828

PATIENT
  Sex: Male

DRUGS (2)
  1. ABILIFY [Suspect]
  2. LITHIUM [Concomitant]

REACTIONS (2)
  - MUSCLE RIGIDITY [None]
  - PYREXIA [None]
